FAERS Safety Report 16815765 (Version 1)
Quarter: 2019Q3

REPORT INFORMATION
  Report Type: Spontaneous
  Country: US (occurrence: US)
  Receive Date: 20190917
  Receipt Date: 20190917
  Transmission Date: 20191005
  Serious: No
  Sender: FDA-Public Use
  Company Number: US-ALLERGAN-1914068US

PATIENT
  Sex: Male

DRUGS (1)
  1. LINZESS [Suspect]
     Active Substance: LINACLOTIDE
     Indication: CONSTIPATION
     Dosage: 145 ?G
     Route: 048
     Dates: start: 20190323

REACTIONS (23)
  - Pain [Recovering/Resolving]
  - Dizziness [Recovering/Resolving]
  - Abdominal distension [Recovering/Resolving]
  - Loss of consciousness [Recovering/Resolving]
  - Pain [Recovered/Resolved]
  - Feeling abnormal [Recovering/Resolving]
  - Pain in extremity [Recovering/Resolving]
  - Gastrointestinal disorder [Recovering/Resolving]
  - Vision blurred [Not Recovered/Not Resolved]
  - Mood altered [Not Recovered/Not Resolved]
  - Angina pectoris [Recovering/Resolving]
  - Chest discomfort [Recovered/Resolved]
  - Malaise [Not Recovered/Not Resolved]
  - Blood pressure increased [Recovered/Resolved]
  - Renal pain [Recovering/Resolving]
  - Muscle tightness [Recovered/Resolved]
  - Heart rate increased [Recovered/Resolved]
  - Chest pain [Recovering/Resolving]
  - Disorientation [Recovering/Resolving]
  - Back pain [Not Recovered/Not Resolved]
  - Fear [Recovered/Resolved]
  - Asthenia [Recovered/Resolved]
  - Limb discomfort [Not Recovered/Not Resolved]

NARRATIVE: CASE EVENT DATE: 20190323
